FAERS Safety Report 5152752-3 (Version None)
Quarter: 2006Q4

REPORT INFORMATION
  Report Type: 
  Country: None (occurrence: None)
  Receive Date: 20061109
  Receipt Date: 20061031
  Transmission Date: 20070319
  Serious: Yes (Other)
  Sender: FDA-Public Use
  Company Number: 2006130321

PATIENT
  Age: 63 Year
  Sex: Female
  Weight: 68.0396 kg

DRUGS (1)
  1. BENADRYL [Suspect]
     Indication: SEASONAL ALLERGY
     Dosage: ONE TABLET 304 TIMES A WEEK, ORAL
     Route: 048

REACTIONS (7)
  - ARTHRALGIA [None]
  - ARTHROPATHY [None]
  - DRY SKIN [None]
  - FATIGUE [None]
  - NASAL DRYNESS [None]
  - SINUS DISORDER [None]
  - SOMNOLENCE [None]
